FAERS Safety Report 12135980 (Version 2)
Quarter: 2016Q1

REPORT INFORMATION
  Report Type: Spontaneous
  Country: JP (occurrence: JP)
  Receive Date: 20160302
  Receipt Date: 20160315
  Transmission Date: 20160526
  Serious: Yes (Death, Other)
  Sender: FDA-Public Use
  Company Number: JP-ROCHE-1021683

PATIENT
  Age: 68 Year
  Sex: Male

DRUGS (26)
  1. RITUXAN [Suspect]
     Active Substance: RITUXIMAB
     Indication: DIFFUSE LARGE B-CELL LYMPHOMA
     Dosage: ON 12/APR/2010, 19/ APR /2010, AND 26/ APR/2010,05/JUL/ 2010,12/JUL/2010,25/FEB/2011,29/MAR/2011,23/
     Route: 065
     Dates: start: 20091211, end: 20110712
  2. PREDONINE [Concomitant]
     Active Substance: PREDNISOLONE\PREDNISOLONE ACETATE\PREDNISOLONE SODIUM SUCCINATE
     Route: 065
     Dates: start: 20100112, end: 20100114
  3. PREDONINE [Concomitant]
     Active Substance: PREDNISOLONE\PREDNISOLONE ACETATE\PREDNISOLONE SODIUM SUCCINATE
     Route: 065
     Dates: start: 20110304, end: 20110308
  4. RITUXAN [Suspect]
     Active Substance: RITUXIMAB
     Route: 065
     Dates: start: 20110712
  5. PREDONINE [Concomitant]
     Active Substance: PREDNISOLONE\PREDNISOLONE ACETATE\PREDNISOLONE SODIUM SUCCINATE
     Route: 065
     Dates: start: 20110330, end: 20110403
  6. ENDOXAN [Concomitant]
     Active Substance: CYCLOPHOSPHAMIDE
     Route: 065
     Dates: start: 20110304
  7. PINORUBIN [Concomitant]
     Active Substance: PIRARUBICIN
     Route: 065
     Dates: start: 20110304
  8. ENDOXAN [Concomitant]
     Active Substance: CYCLOPHOSPHAMIDE
     Route: 065
     Dates: start: 20110524
  9. ENDOXAN [Concomitant]
     Active Substance: CYCLOPHOSPHAMIDE
     Route: 065
     Dates: start: 20110621
  10. FILDESIN [Concomitant]
     Active Substance: VINDESINE SULFATE
     Indication: DIFFUSE LARGE B-CELL LYMPHOMA
     Route: 065
     Dates: start: 20091130
  11. FILDESIN [Concomitant]
     Active Substance: VINDESINE SULFATE
     Route: 065
     Dates: start: 20110524
  12. PREDONINE [Concomitant]
     Active Substance: PREDNISOLONE\PREDNISOLONE ACETATE\PREDNISOLONE SODIUM SUCCINATE
     Route: 065
     Dates: start: 20110713, end: 20110717
  13. PREDONINE [Concomitant]
     Active Substance: PREDNISOLONE\PREDNISOLONE ACETATE\PREDNISOLONE SODIUM SUCCINATE
     Route: 065
     Dates: start: 20111020
  14. ENDOXAN [Concomitant]
     Active Substance: CYCLOPHOSPHAMIDE
     Indication: DIFFUSE LARGE B-CELL LYMPHOMA
     Route: 065
     Dates: start: 20091130
  15. PREDONINE [Concomitant]
     Active Substance: PREDNISOLONE\PREDNISOLONE ACETATE\PREDNISOLONE SODIUM SUCCINATE
     Route: 065
     Dates: start: 20091127
  16. FILDESIN [Concomitant]
     Active Substance: VINDESINE SULFATE
     Route: 065
     Dates: start: 20110304
  17. PREDONINE [Concomitant]
     Active Substance: PREDNISOLONE\PREDNISOLONE ACETATE\PREDNISOLONE SODIUM SUCCINATE
     Route: 065
     Dates: start: 20110524, end: 20110528
  18. PINORUBIN [Concomitant]
     Active Substance: PIRARUBICIN
     Indication: DIFFUSE LARGE B-CELL LYMPHOMA
     Route: 065
     Dates: start: 20091130
  19. PINORUBIN [Concomitant]
     Active Substance: PIRARUBICIN
     Route: 065
     Dates: start: 20100112
  20. PINORUBIN [Concomitant]
     Active Substance: PIRARUBICIN
     Route: 065
     Dates: start: 20110524
  21. ENDOXAN [Concomitant]
     Active Substance: CYCLOPHOSPHAMIDE
     Route: 065
     Dates: start: 20100112
  22. FILDESIN [Concomitant]
     Active Substance: VINDESINE SULFATE
     Route: 065
     Dates: start: 20100112
  23. FILDESIN [Concomitant]
     Active Substance: VINDESINE SULFATE
     Route: 065
     Dates: start: 20110621
  24. PREDONINE [Concomitant]
     Active Substance: PREDNISOLONE\PREDNISOLONE ACETATE\PREDNISOLONE SODIUM SUCCINATE
     Route: 065
     Dates: start: 20110621, end: 20110625
  25. PINORUBIN [Concomitant]
     Active Substance: PIRARUBICIN
     Route: 065
     Dates: start: 20091130
  26. PINORUBIN [Concomitant]
     Active Substance: PIRARUBICIN
     Route: 065
     Dates: start: 20110621

REACTIONS (8)
  - Lymphoma [Fatal]
  - Hepatitis B [Recovering/Resolving]
  - Bone marrow failure [Unknown]
  - Pneumonia viral [Unknown]
  - Cardiac failure [Recovered/Resolved]
  - Staphylococcal infection [Unknown]
  - Hepatic failure [Fatal]
  - Bronchopulmonary aspergillosis [Recovering/Resolving]

NARRATIVE: CASE EVENT DATE: 20091217
